FAERS Safety Report 15430990 (Version 1)
Quarter: 2018Q3

REPORT INFORMATION
  Report Type: Spontaneous
  Country: US (occurrence: US)
  Receive Date: 20180926
  Receipt Date: 20180926
  Transmission Date: 20181010
  Serious: No
  Sender: FDA-Public Use
  Company Number: US-INDIVIOR LIMITED-INDV-111490-2018

PATIENT
  Age: 37 Year
  Sex: Female
  Weight: 102.49 kg

DRUGS (2)
  1. SUBUTEX [Suspect]
     Active Substance: BUPRENORPHINE HYDROCHLORIDE
     Indication: PRODUCT USED FOR UNKNOWN INDICATION
     Dosage: 16MG PER DAY
     Route: 048
     Dates: start: 20180208, end: 20180211
  2. SUBUTEX [Suspect]
     Active Substance: BUPRENORPHINE HYDROCHLORIDE
     Dosage: 8MG DAILY
     Route: 048
     Dates: start: 20180212

REACTIONS (6)
  - Crying [Unknown]
  - Product use issue [Unknown]
  - Mental disorder [Unknown]
  - Malaise [Unknown]
  - Weight increased [Unknown]
  - Drug withdrawal syndrome [Unknown]

NARRATIVE: CASE EVENT DATE: 201802
